FAERS Safety Report 4910198-4 (Version None)
Quarter: 2006Q1

REPORT INFORMATION
  Report Type: 
  Country: None (occurrence: None)
  Receive Date: 20060213
  Receipt Date: 20060109
  Transmission Date: 20060701
  Serious: Yes (Other)
  Sender: FDA-Public Use
  Company Number: US-MERCK-0601USA01041

PATIENT
  Age: 60 Year
  Sex: Female
  Weight: 73 kg

DRUGS (17)
  1. VIOXX [Suspect]
     Route: 048
     Dates: start: 20000201, end: 20040501
  2. VIOXX [Suspect]
     Route: 048
     Dates: start: 20000201, end: 20040501
  3. ADVAIR DISKUS 100/50 [Concomitant]
     Route: 065
  4. COUMADIN [Concomitant]
     Route: 065
  5. DIOVAN [Concomitant]
     Route: 065
  6. INSULIN GLARGINE [Concomitant]
     Route: 065
  7. [THERAPY UNSPECIFIED] [Concomitant]
     Route: 065
  8. LIPITOR [Concomitant]
     Route: 065
  9. LOMOTIL [Concomitant]
     Route: 065
  10. [THERAPY UNSPECIFIED] [Concomitant]
     Route: 065
  11. NEURONTIN [Concomitant]
     Route: 065
  12. [THERAPY UNSPECIFIED] [Concomitant]
     Route: 065
  13. PHENOBARBITAL [Concomitant]
     Route: 065
  14. TRAZODONE HYDROCHLORIDE [Concomitant]
     Route: 065
  15. PREVACID [Concomitant]
     Route: 065
  16. ALTACE [Concomitant]
     Route: 065
  17. FUROSEMIDE [Concomitant]
     Route: 065

REACTIONS (6)
  - ADVERSE EVENT [None]
  - CARDIAC DISORDER [None]
  - CEREBROVASCULAR ACCIDENT [None]
  - DEPRESSION [None]
  - LUNG DISORDER [None]
  - MYOCARDIAL INFARCTION [None]
